FAERS Safety Report 17839943 (Version 1)
Quarter: 2020Q2

REPORT INFORMATION
  Report Type: Spontaneous
  Country: US (occurrence: US)
  Receive Date: 20200529
  Receipt Date: 20200529
  Transmission Date: 20200714
  Serious: No
  Sender: FDA-Public Use
  Company Number: US-009507513-2005USA009658

PATIENT
  Sex: Female

DRUGS (1)
  1. INTRON A [Suspect]
     Active Substance: INTERFERON ALFA-2B
     Indication: CHRONIC MYELOID LEUKAEMIA
     Dosage: UNK, TIW 3 MILLION UNITS  (6MMU/ML)
     Route: 058
     Dates: start: 20181205

REACTIONS (2)
  - Product use in unapproved indication [Unknown]
  - Gastric disorder [Unknown]
